FAERS Safety Report 23484356 (Version 1)
Quarter: 2024Q1

REPORT INFORMATION
  Report Type: Report from Study
  Country: US (occurrence: US)
  Receive Date: 20240206
  Receipt Date: 20240206
  Transmission Date: 20240410
  Serious: Yes (Other)
  Sender: FDA-Public Use
  Company Number: US-ABBVIE-5618832

PATIENT
  Sex: Female

DRUGS (1)
  1. HUMIRA [Suspect]
     Active Substance: ADALIMUMAB
     Indication: Rheumatoid arthritis
     Route: 058
     Dates: start: 20190131

REACTIONS (5)
  - Cutaneous lupus erythematosus [Unknown]
  - Hypertonic bladder [Not Recovered/Not Resolved]
  - Lupus-like syndrome [Unknown]
  - Urinary tract infection [Not Recovered/Not Resolved]
  - Pollakiuria [Unknown]
